FAERS Safety Report 10657515 (Version 1)
Quarter: 2014Q4

REPORT INFORMATION
  Report Type: Spontaneous
  Country: NO (occurrence: None)
  Receive Date: 20141215
  Receipt Date: 20141215
  Transmission Date: 20150529
  Serious: Yes (Other)
  Sender: FDA-Public Use
  Company Number: NO2014018237

PATIENT
  Age: 51 Year
  Sex: Female

DRUGS (5)
  1. HALDOL [Suspect]
     Active Substance: HALOPERIDOL
     Indication: ALCOHOLISM
     Route: 048
     Dates: start: 20130327
  2. SEROXAT (PAROXETINE HYDROCHLORIDE) UNKNOWN [Suspect]
     Active Substance: PAROXETINE HYDROCHLORIDE
     Indication: DEPRESSION
     Dosage: DOSAGE FORM: UNSPECIFIED?
  3. SEROXAT (PAROXETINE HYDROCHLORIDE) UNKNOWN [Suspect]
     Active Substance: PAROXETINE HYDROCHLORIDE
     Indication: ANXIETY
     Dosage: DOSAGE FORM: UNSPECIFIED?
  4. HALDOL [Suspect]
     Active Substance: HALOPERIDOL
     Indication: SLEEP DISORDER
     Route: 048
     Dates: start: 20130327
  5. HALDOL [Suspect]
     Active Substance: HALOPERIDOL
     Indication: PSYCHOMOTOR HYPERACTIVITY
     Route: 048
     Dates: start: 20130327

REACTIONS (9)
  - Tardive dyskinesia [None]
  - Product use issue [None]
  - Constipation [None]
  - Quality of life decreased [None]
  - Dizziness [None]
  - Tooth injury [None]
  - Social avoidant behaviour [None]
  - Extrapyramidal disorder [None]
  - Abdominal pain upper [None]

NARRATIVE: CASE EVENT DATE: 20120118
